FAERS Safety Report 19473051 (Version 1)
Quarter: 2021Q2

REPORT INFORMATION
  Report Type: Spontaneous
  Country: FR (occurrence: FR)
  Receive Date: 20210629
  Receipt Date: 20210629
  Transmission Date: 20210717
  Serious: Yes (Hospitalization, Disabling)
  Sender: FDA-Public Use
  Company Number: FR-OTSUKA-2021_021594

PATIENT
  Age: 25 Year
  Sex: Male
  Weight: 72 kg

DRUGS (15)
  1. TERCIAN [CYAMEMAZINE TARTRATE] [Suspect]
     Active Substance: CYAMEMAZINE
     Dosage: 200 GTT, QD
     Route: 048
     Dates: start: 20210423, end: 20210423
  2. TERCIAN [CYAMEMAZINE TARTRATE] [Suspect]
     Active Substance: CYAMEMAZINE
     Dosage: 90 GTT, QD
     Route: 048
     Dates: start: 20210531, end: 20210603
  3. TERCIAN [CYAMEMAZINE TARTRATE] [Suspect]
     Active Substance: CYAMEMAZINE
     Dosage: 150 GTT, QD
     Route: 048
     Dates: start: 20210525, end: 20210531
  4. LOXAPAC [LOXAPINE] [Concomitant]
     Active Substance: LOXAPINE
     Dosage: 100 GTT, QD
     Route: 030
     Dates: start: 20210419
  5. TERCIAN [CYAMEMAZINE TARTRATE] [Suspect]
     Active Substance: CYAMEMAZINE
     Indication: SCHIZOPHRENIA
     Dosage: 175 GTT, QD
     Route: 048
     Dates: start: 20210519, end: 20210525
  6. TERCIAN [CYAMEMAZINE TARTRATE] [Suspect]
     Active Substance: CYAMEMAZINE
     Dosage: 45 GTT, QD
     Route: 048
     Dates: start: 20210603, end: 20210605
  7. ABILIFY MAINTENA [Suspect]
     Active Substance: ARIPIPRAZOLE
     Indication: SCHIZOPHRENIA
     Dosage: 400 MG, QM
     Route: 030
     Dates: start: 20210413, end: 20210413
  8. TERCIAN [CYAMEMAZINE TARTRATE] [Suspect]
     Active Substance: CYAMEMAZINE
     Dosage: 200 GTT, QD
     Route: 048
     Dates: start: 20210514, end: 20210519
  9. RISPERIDONE. [Concomitant]
     Active Substance: RISPERIDONE
     Indication: SCHIZOPHRENIA
     Dosage: 6 MG, QD
     Route: 048
     Dates: start: 20210423, end: 20210507
  10. ARIPIPRAZOLE. [Suspect]
     Active Substance: ARIPIPRAZOLE
     Indication: SCHIZOPHRENIA
     Dosage: 15 MG, QD
     Route: 065
     Dates: start: 20210408, end: 20210419
  11. LOXAPAC [LOXAPINE] [Concomitant]
     Active Substance: LOXAPINE
     Indication: SCHIZOPHRENIA
     Dosage: 100 GTT, QD
     Route: 030
     Dates: start: 20210408
  12. HALDOL [Suspect]
     Active Substance: HALOPERIDOL
     Indication: SCHIZOPHRENIA
     Dosage: 20 MG, QD
     Route: 048
     Dates: start: 20210507, end: 20210601
  13. HALDOL DECANOAS [Suspect]
     Active Substance: HALOPERIDOL DECANOATE
     Indication: SCHIZOPHRENIA
     Dosage: 250 MG, QM
     Route: 030
     Dates: start: 20210526, end: 20210526
  14. TERCIAN [CYAMEMAZINE TARTRATE] [Suspect]
     Active Substance: CYAMEMAZINE
     Dosage: 250 GTT, QD
     Route: 048
     Dates: start: 20210424, end: 20210514
  15. RISPERIDONE. [Concomitant]
     Active Substance: RISPERIDONE
     Dosage: 4 MG, QD
     Route: 048
     Dates: start: 20210419, end: 20210423

REACTIONS (1)
  - Hepatic cytolysis [Recovered/Resolved]

NARRATIVE: CASE EVENT DATE: 20210525
